FAERS Safety Report 19237020 (Version 1)
Quarter: 2021Q2

REPORT INFORMATION
  Report Type: Spontaneous
  Country: US (occurrence: US)
  Receive Date: 20210508
  Receipt Date: 20210508
  Transmission Date: 20210717
  Serious: No
  Sender: FDA-Public Use
  Company Number: None

PATIENT
  Age: 75 Year
  Sex: Male
  Weight: 67.5 kg

DRUGS (1)
  1. C?CALCIPOTRIENE/FLUOROURACIL  0.005/5% CREAM [Suspect]
     Active Substance: CALCIPOTRIENE\FLUOROURACIL
     Indication: SKIN CANCER
     Dosage: ?          QUANTITY:30 GRAMS;?
     Route: 061
     Dates: start: 20210422, end: 20210425

REACTIONS (3)
  - Erythema [None]
  - Suspected product quality issue [None]
  - Swelling face [None]

NARRATIVE: CASE EVENT DATE: 20210430
